FAERS Safety Report 7275373-5 (Version None)
Quarter: 2011Q1

REPORT INFORMATION
  Report Type: 
  Country: None (occurrence: None)
  Receive Date: 20110204
  Receipt Date: 20110124
  Transmission Date: 20110831
  Serious: Yes (Hospitalization, Other)
  Sender: FDA-Public Use
  Company Number: US-ELI_LILLY_AND_COMPANY-US200910007737

PATIENT
  Sex: Male

DRUGS (37)
  1. ZYPREXA [Suspect]
     Dosage: 5 MG, DAILY (1/D)
     Route: 065
     Dates: start: 20030625
  2. ALLOPURINOL [Concomitant]
     Dosage: 100 MG, UNKNOWN
     Route: 065
     Dates: start: 20020211
  3. ALLOPURINOL [Concomitant]
     Dosage: 300 MG, UNKNOWN
     Route: 065
     Dates: start: 20020213
  4. HYDROCODONE BITARTRATE [Concomitant]
     Dosage: 5-500 MG UNK, UNKNOWN
     Route: 065
     Dates: start: 20020710
  5. LISINOPRIL [Concomitant]
     Indication: HYPERTENSION
     Dosage: 10 MG, UNKNOWN
     Route: 065
     Dates: start: 20020722
  6. AUGMENTIN '125' [Concomitant]
     Dosage: 875 MG, UNKNOWN
     Route: 065
     Dates: start: 20021128
  7. ADDERALL 10 [Concomitant]
     Dosage: 30 MG, UNKNOWN
     Route: 065
     Dates: start: 20030820
  8. STRATTERA [Suspect]
     Dosage: 40 MG, UNKNOWN
     Route: 065
     Dates: start: 20030725
  9. RITALIN [Concomitant]
     Dosage: 10 MG, UNKNOWN
     Route: 065
     Dates: start: 20020319
  10. INDOMETHACIN [Concomitant]
     Dosage: 75 MG, UNKNOWN
     Route: 065
     Dates: start: 20021216
  11. CIMETIDINE [Concomitant]
     Dosage: 400 MG, UNKNOWN
     Route: 065
     Dates: start: 20030725
  12. GEMFIBROZIL [Concomitant]
     Dosage: 600 MG, UNKNOWN
     Route: 065
     Dates: start: 20030820
  13. AMARYL [Concomitant]
     Indication: TYPE 2 DIABETES MELLITUS
     Dosage: 4 MG, DAILY (1/D)
     Route: 065
     Dates: start: 20030826
  14. ZYPREXA [Suspect]
     Indication: DEPRESSION
     Dosage: 1 D/F, UNK
     Route: 065
     Dates: start: 20011204
  15. ZOLOFT [Concomitant]
     Indication: DEPRESSION
     Dosage: 100 MG, UNKNOWN
     Route: 065
     Dates: start: 20011223
  16. RITALIN [Concomitant]
     Dosage: 10 MG, UNKNOWN
     Route: 065
     Dates: start: 20020213
  17. LISINOPRIL [Concomitant]
     Dosage: 20 MG, UNKNOWN
     Route: 065
     Dates: start: 20021017
  18. GUAIFENESIN [Concomitant]
     Dosage: 1200 UNK, UNKNOWN
     Route: 065
     Dates: start: 20021128
  19. RITALIN [Concomitant]
     Indication: ATTENTION DEFICIT/HYPERACTIVITY DISORDER
     Dosage: 20 MG, UNKNOWN
     Route: 065
     Dates: start: 20011204
  20. RITALIN [Concomitant]
     Dosage: 20 MG, UNKNOWN
     Route: 065
     Dates: start: 20020213
  21. INDOMETHACIN [Concomitant]
     Dosage: 25 MG, UNKNOWN
     Route: 065
     Dates: start: 20011220
  22. INDOMETHACIN [Concomitant]
     Dosage: 50 MG, UNKNOWN
     Route: 065
     Dates: start: 20021127
  23. PRINIVIL [Concomitant]
     Dosage: 10 MG, DAILY (1/D)
     Route: 065
     Dates: start: 20011223
  24. LISINOPRIL [Concomitant]
     Dosage: 40 MG, UNKNOWN
     Route: 065
     Dates: start: 20021114
  25. COLCHICINE [Concomitant]
     Dosage: 6 MG, UNKNOWN
     Route: 065
     Dates: start: 20021103
  26. TRICOR [Concomitant]
     Dosage: 160 MG, UNKNOWN
     Route: 065
     Dates: start: 20021114
  27. CEPHALEXIN [Concomitant]
     Dosage: 500 MG, UNKNOWN
     Route: 065
     Dates: start: 20021216
  28. ZYPREXA [Suspect]
     Dosage: 10 MG, DAILY (1/D)
     Route: 065
     Dates: start: 20030210
  29. INDOMETHACIN [Concomitant]
     Dosage: 75 MG, UNKNOWN
     Route: 065
     Dates: start: 20021121
  30. LEVAQUIN [Concomitant]
     Dosage: 500 MG, UNKNOWN
     Route: 065
     Dates: start: 20021121
  31. ECONAZOLE NITRATE [Concomitant]
     Dosage: UNK, UNKNOWN
     Route: 065
     Dates: start: 20021216
  32. EFFEXOR [Concomitant]
     Indication: DEPRESSION
     Dosage: 37.5 MG, UNKNOWN
     Route: 065
     Dates: start: 20011229
  33. ALLOPURINOL [Concomitant]
     Dosage: 300 MG, UNKNOWN
     Route: 065
     Dates: start: 20011229
  34. HYDROCODONE BITARTRATE [Concomitant]
     Dosage: 7.5-500 MGUNK, UNKNOWN
     Route: 065
     Dates: start: 20021216
  35. LIPITOR [Concomitant]
     Dosage: 40 MG, DAILY (1/D)
     Route: 065
     Dates: start: 20011218
  36. LIPITOR [Concomitant]
     Dosage: 10 MG, DAILY (1/D)
     Route: 065
     Dates: start: 20030826
  37. ASPIRIN [Concomitant]
     Dosage: UNK, DAILY (1/D)
     Route: 065

REACTIONS (17)
  - HAEMORRHAGE [None]
  - ANAEMIA [None]
  - PANCREATITIS [None]
  - LIMB INJURY [None]
  - GLUCOSE TOLERANCE IMPAIRED [None]
  - HYPERTENSION [None]
  - VISION BLURRED [None]
  - BLOOD TRIGLYCERIDES INCREASED [None]
  - HEPATITIS B [None]
  - DRUG INTERACTION [None]
  - XANTHOMA [None]
  - PNEUMONIA [None]
  - NEUROPATHY PERIPHERAL [None]
  - TYPE 2 DIABETES MELLITUS [None]
  - DIABETIC KETOACIDOSIS [None]
  - MOBILITY DECREASED [None]
  - BLOOD CHOLESTEROL INCREASED [None]
